FAERS Safety Report 5983745-1 (Version None)
Quarter: 2008Q4

REPORT INFORMATION
  Report Type: 
  Country: None (occurrence: None)
  Receive Date: 20081208
  Receipt Date: 20081017
  Transmission Date: 20090506
  Serious: Yes (Other)
  Sender: FDA-Public Use
  Company Number: US-AMGEN-QUU314103

PATIENT
  Sex: Female

DRUGS (5)
  1. ENBREL [Suspect]
     Indication: RHEUMATOID ARTHRITIS
     Route: 058
     Dates: start: 20070827
  2. ENBREL [Suspect]
     Indication: PSORIATIC ARTHROPATHY
  3. ENBREL [Suspect]
     Indication: SJOGREN'S SYNDROME
  4. ARAVA [Concomitant]
     Route: 048
  5. PLAQUENIL [Concomitant]
     Route: 048

REACTIONS (2)
  - EAR LOBE INFECTION [None]
  - THROMBOSIS [None]
